FAERS Safety Report 7812457-4 (Version None)
Quarter: 2011Q4

REPORT INFORMATION
  Report Type: 
  Country: None (occurrence: None)
  Receive Date: 20111013
  Receipt Date: 20111007
  Transmission Date: 20120403
  Serious: Yes (Hospitalization, Disabling, Other)
  Sender: FDA-Public Use
  Company Number: US-MERCK-1012USA01885

PATIENT
  Age: 51 Year
  Sex: Female
  Weight: 55 kg

DRUGS (14)
  1. IBUPROFEN [Concomitant]
     Route: 065
  2. GLUCOSAMINE [Concomitant]
     Route: 065
  3. CALCIUM CITRATE AND VITAMIN D (UNSPECIFIED) [Concomitant]
     Route: 065
  4. OMEGA-3 MARINE TRIGLYCERIDES [Concomitant]
     Route: 065
  5. FOSAMAX [Suspect]
     Route: 048
     Dates: start: 20100302, end: 20100630
  6. VITAMINS (UNSPECIFIED) [Concomitant]
     Route: 065
  7. PREMARIN [Concomitant]
     Indication: HORMONE REPLACEMENT THERAPY
     Route: 065
     Dates: start: 20030101
  8. CALCIUM CITRATE [Concomitant]
     Route: 065
  9. VITAMIN E [Concomitant]
     Route: 065
  10. GINKGO BILOBA FORTE [Concomitant]
     Route: 065
  11. FOSAMAX [Suspect]
     Indication: OSTEOPOROSIS
     Route: 048
     Dates: start: 20020525, end: 20060705
  12. BONIVA [Suspect]
     Indication: OSTEOPOROSIS
     Route: 048
     Dates: start: 20060803, end: 20100131
  13. VITAMIN D (UNSPECIFIED) [Concomitant]
     Route: 065
  14. AMOXICILLIN [Concomitant]
     Route: 065
     Dates: start: 20010101, end: 20040101

REACTIONS (27)
  - FEMUR FRACTURE [None]
  - ANXIETY [None]
  - BACK DISORDER [None]
  - LUNG NEOPLASM [None]
  - RADICULITIS CERVICAL [None]
  - PAPILLOMA VIRAL INFECTION [None]
  - NAUSEA [None]
  - SARCOIDOSIS [None]
  - ULNA FRACTURE [None]
  - MUSCULOSKELETAL PAIN [None]
  - FALL [None]
  - ATROPHY [None]
  - VAGINAL DYSPLASIA [None]
  - EXTRASYSTOLES [None]
  - INTERVERTEBRAL DISC DEGENERATION [None]
  - CERVICAL DYSPLASIA [None]
  - SPINAL OSTEOARTHRITIS [None]
  - GENITAL HERPES [None]
  - ELECTROCARDIOGRAM ST-T CHANGE [None]
  - HERPES ZOSTER [None]
  - GINGIVAL RECESSION [None]
  - CERVICOBRACHIAL SYNDROME [None]
  - RADIUS FRACTURE [None]
  - SMEAR CERVIX ABNORMAL [None]
  - URETHRAL CARUNCLE [None]
  - HAEMORRHOIDS [None]
  - ANOGENITAL WARTS [None]
